FAERS Safety Report 18308266 (Version 2)
Quarter: 2021Q1

REPORT INFORMATION
  Report Type: Spontaneous
  Country: US (occurrence: US)
  Receive Date: 20200924
  Receipt Date: 20210226
  Transmission Date: 20210419
  Serious: Yes (Hospitalization, Other)
  Sender: FDA-Public Use
  Company Number: US-PURDUE-USA-2020-0167439

PATIENT
  Sex: Male

DRUGS (3)
  1. TRAMADOL. [Suspect]
     Active Substance: TRAMADOL
     Indication: PRODUCT USED FOR UNKNOWN INDICATION
     Dosage: UNK
     Route: 065
  2. OXYCONTIN [Suspect]
     Active Substance: OXYCODONE HYDROCHLORIDE
     Indication: PRODUCT USED FOR UNKNOWN INDICATION
     Dosage: UNK
     Route: 048
  3. OXYFAST [Suspect]
     Active Substance: OXYCODONE
     Indication: PRODUCT USED FOR UNKNOWN INDICATION
     Dosage: UNK
     Route: 065

REACTIONS (12)
  - Injury [Unknown]
  - Procedural pain [Not Recovered/Not Resolved]
  - Hip fracture [Unknown]
  - Post procedural discomfort [Not Recovered/Not Resolved]
  - Overdose [Unknown]
  - Disability [Unknown]
  - Drug dependence [Unknown]
  - Learning disorder [Unknown]
  - Emotional distress [Unknown]
  - Psychological trauma [Unknown]
  - Pain [Unknown]
  - Developmental delay [Unknown]
